FAERS Safety Report 17282905 (Version 1)
Quarter: 2020Q1

REPORT INFORMATION
  Report Type: Spontaneous
  Country: US (occurrence: US)
  Receive Date: 20191230
  Receipt Date: 20191230
  Transmission Date: 20200409
  Serious: No
  Sender: FDA-Public Use
  Company Number: None

PATIENT
  Sex: Female

DRUGS (1)
  1. NEUPOGEN [Suspect]
     Active Substance: FILGRASTIM
     Indication: AGRANULOCYTOSIS
     Dosage: ?          OTHER FREQUENCY:EVERY 3 DAYS;?
     Route: 058
     Dates: start: 20191215

REACTIONS (5)
  - Gait disturbance [None]
  - Asthenia [None]
  - Decreased appetite [None]
  - Fatigue [None]
  - Hypophagia [None]
